FAERS Safety Report 14410668 (Version 2)
Quarter: 2018Q2

REPORT INFORMATION
  Report Type: Report from Study
  Country: None (occurrence: US)
  Receive Date: 20180119
  Receipt Date: 20180402
  Transmission Date: 20180711
  Serious: Yes (Hospitalization, Other)
  Sender: FDA-Public Use
  Company Number: US-ABBVIE-17K-163-2207333-00

PATIENT
  Age: 70 Year
  Sex: Male
  Weight: 93.07 kg

DRUGS (2)
  1. HUMIRA [Suspect]
     Active Substance: ADALIMUMAB
     Indication: PSORIATIC ARTHROPATHY
     Route: 058
     Dates: start: 2013, end: 20171203
  2. HUMIRA [Suspect]
     Active Substance: ADALIMUMAB
     Route: 058
     Dates: start: 20180301

REACTIONS (8)
  - Chondropathy [Recovered/Resolved]
  - Spinal fusion surgery [Unknown]
  - Procedural pain [Recovering/Resolving]
  - Joint stiffness [Not Recovered/Not Resolved]
  - Nerve compression [Recovered/Resolved]
  - Shoulder arthroplasty [Recovering/Resolving]
  - Joint stiffness [Not Recovered/Not Resolved]
  - Muscular weakness [Recovered/Resolved]

NARRATIVE: CASE EVENT DATE: 2014
